FAERS Safety Report 11997178 (Version 1)
Quarter: 2016Q1

REPORT INFORMATION
  Report Type: Report from Study
  Country: US (occurrence: US)
  Receive Date: 20160203
  Receipt Date: 20160203
  Transmission Date: 20160526
  Serious: No
  Sender: FDA-Public Use
  Company Number: US-AMGEN-USASL2016009396

PATIENT
  Age: 63 Year
  Sex: Female

DRUGS (4)
  1. METHOTREXATE [Concomitant]
     Active Substance: METHOTREXATE
     Dosage: UNK
  2. PREDNISONE. [Concomitant]
     Active Substance: PREDNISONE
     Dosage: UNK
  3. ENBREL [Suspect]
     Active Substance: ETANERCEPT
     Indication: RHEUMATOID ARTHRITIS
     Dosage: 50 MG, WEEKLY
     Route: 065
     Dates: start: 2000
  4. ENBREL [Suspect]
     Active Substance: ETANERCEPT
     Dosage: UNK UNK, 2 TIMES/WK
     Route: 065

REACTIONS (10)
  - Peripheral swelling [Unknown]
  - Injection site rash [Unknown]
  - Bone density abnormal [Unknown]
  - Hypoaesthesia [Unknown]
  - Raynaud^s phenomenon [Unknown]
  - Swelling [Unknown]
  - Pain [Unknown]
  - Skin discolouration [Unknown]
  - Thyroid disorder [Unknown]
  - Injection site bruising [Unknown]
